FAERS Safety Report 6150026-5 (Version None)
Quarter: 2009Q2

REPORT INFORMATION
  Report Type: 
  Country: None (occurrence: None)
  Receive Date: 20090409
  Receipt Date: 20090407
  Transmission Date: 20091009
  Serious: Yes (Death)
  Sender: FDA-Public Use
  Company Number: B0569016A

PATIENT
  Sex: Female
  Weight: 80 kg

DRUGS (2)
  1. LAPATINIB [Suspect]
     Dates: start: 20090212, end: 20090403
  2. CAPECITABINE [Suspect]
     Dates: start: 20081117, end: 20090403

REACTIONS (1)
  - DEATH [None]
